FAERS Safety Report 4960472-0 (Version None)
Quarter: 2006Q2

REPORT INFORMATION
  Report Type: 
  Country: None (occurrence: None)
  Receive Date: 20060403
  Receipt Date: 20060323
  Transmission Date: 20061013
  Serious: Yes (Hospitalization)
  Sender: FDA-Public Use
  Company Number: CH-GLAXOSMITHKLINE-B0418687A

PATIENT
  Age: 33 Year
  Sex: Female

DRUGS (3)
  1. AUGMENTIN '125' [Suspect]
     Indication: HEADACHE
     Dosage: 625MG PER DAY
     Route: 048
     Dates: start: 20060303, end: 20060303
  2. AMOXICILLIN [Suspect]
     Indication: HEADACHE
     Dosage: 1G PER DAY
     Route: 048
     Dates: start: 20060303, end: 20060304
  3. MEFANAMIC ACID [Suspect]
     Indication: HEADACHE
     Dosage: 500MG PER DAY
     Route: 048
     Dates: start: 20060303, end: 20060303

REACTIONS (6)
  - ACUTE GENERALISED EXANTHEMATOUS PUSTULOSIS [None]
  - ENANTHEMA [None]
  - PYREXIA [None]
  - RASH [None]
  - RASH MACULO-PAPULAR [None]
  - RASH PUSTULAR [None]
